FAERS Safety Report 16569202 (Version 3)
Quarter: 2019Q3

REPORT INFORMATION
  Report Type: Spontaneous
  Country: US (occurrence: US)
  Receive Date: 20190714
  Receipt Date: 20190905
  Transmission Date: 20191004
  Serious: No
  Sender: FDA-Public Use
  Company Number: US-MTPC-MTDA2019-0061640

PATIENT

DRUGS (4)
  1. RILUZOLE. [Concomitant]
     Active Substance: RILUZOLE
     Indication: PRODUCT USED FOR UNKNOWN INDICATION
     Dosage: 50 MILLIGRAM, TWICE A DAY
     Route: 065
  2. RADICAVA [Suspect]
     Active Substance: EDARAVONE
     Dosage: UNK
     Route: 065
  3. RADICAVA [Suspect]
     Active Substance: EDARAVONE
     Indication: AMYOTROPHIC LATERAL SCLEROSIS
     Dosage: 60 MILLIGRAM OVER 60 MIN QD FOR 14 DAYS
     Route: 042
     Dates: start: 20171024
  4. RADICAVA [Suspect]
     Active Substance: EDARAVONE
     Dosage: 60 MILLIGRAM QD, FOR 10 OUT OF 14 DAYS
     Route: 042
     Dates: end: 20190613

REACTIONS (2)
  - Product dose omission [Unknown]
  - General physical health deterioration [Not Recovered/Not Resolved]
